FAERS Safety Report 15203050 (Version 4)
Quarter: 2019Q4

REPORT INFORMATION
  Report Type: Spontaneous
  Country: US (occurrence: US)
  Receive Date: 20180726
  Receipt Date: 20191105
  Transmission Date: 20200122
  Serious: Yes (Other)
  Sender: FDA-Public Use
  Company Number: US-PFIZER INC-2018293330

PATIENT
  Age: 69 Year
  Sex: Male

DRUGS (2)
  1. BOSULIF [Suspect]
     Active Substance: BOSUTINIB MONOHYDRATE
     Dosage: 400 MG, UNK
  2. BOSULIF [Suspect]
     Active Substance: BOSUTINIB MONOHYDRATE
     Indication: CHRONIC MYELOID LEUKAEMIA
     Dosage: 500 MG, 1X/DAY (AT NIGHT )
     Route: 048
     Dates: start: 201801

REACTIONS (8)
  - Haematochezia [Unknown]
  - Nasopharyngitis [Unknown]
  - Malaise [Unknown]
  - Pulmonary fibrosis [Unknown]
  - Peripheral swelling [Unknown]
  - Diarrhoea [Unknown]
  - Cough [Unknown]
  - Joint swelling [Unknown]

NARRATIVE: CASE EVENT DATE: 201905
